FAERS Safety Report 24024755 (Version 1)
Quarter: 2024Q2

REPORT INFORMATION
  Report Type: Report from Study
  Country: US (occurrence: US)
  Receive Date: 20240628
  Receipt Date: 20240628
  Transmission Date: 20240716
  Serious: No
  Sender: FDA-Public Use
  Company Number: US-ROCHE-3478556

PATIENT
  Age: 66 Year
  Sex: Female
  Weight: 103.0 kg

DRUGS (10)
  1. ALECENSA [Suspect]
     Active Substance: ALECTINIB HYDROCHLORIDE
     Indication: Metastases to bone
     Route: 048
  2. ALECENSA [Suspect]
     Active Substance: ALECTINIB HYDROCHLORIDE
     Indication: Lung neoplasm malignant
     Dosage: TAKE 4 CAPSULE BY MOUTH IN THE MORNING AND 4 CAPSULE IN THE EVENING
     Route: 048
  3. ZANAFLEX [Concomitant]
     Active Substance: TIZANIDINE HYDROCHLORIDE
  4. ZOFRAN [Concomitant]
     Active Substance: ONDANSETRON HYDROCHLORIDE
  5. MELATONIN [Concomitant]
     Active Substance: MELATONIN
  6. ATIVAN [Concomitant]
     Active Substance: LORAZEPAM
  7. KEPPRA [Concomitant]
     Active Substance: LEVETIRACETAM
  8. LASIX [Concomitant]
     Active Substance: FUROSEMIDE
  9. FOLVITE [Concomitant]
     Active Substance: FOLIC ACID
  10. DECADRON [Concomitant]
     Active Substance: DEXAMETHASONE

REACTIONS (5)
  - Red blood cell count decreased [Unknown]
  - Haemoglobin decreased [Unknown]
  - Haematocrit decreased [Unknown]
  - Alcoholism [Unknown]
  - Depression [Unknown]
